FAERS Safety Report 9772222 (Version 1)
Quarter: 2013Q4

REPORT INFORMATION
  Report Type: Spontaneous
  Country: IT (occurrence: IT)
  Receive Date: 20131219
  Receipt Date: 20131219
  Transmission Date: 20140711
  Serious: Yes (Hospitalization)
  Sender: FDA-Public Use
  Company Number: PHHY2013IT145655

PATIENT
  Age: 60 Year
  Sex: Male

DRUGS (2)
  1. LEPONEX / CLOZARIL (CLOZAPINE) [Suspect]
     Dosage: 100 MG, QD
     Dates: start: 20130104, end: 20130104
  2. ENAPREN [Concomitant]
     Dosage: UNK

REACTIONS (4)
  - Sopor [Recovered/Resolved]
  - Hypotonia [Recovered/Resolved]
  - Dysarthria [Recovered/Resolved]
  - Tachycardia [Recovered/Resolved]
